FAERS Safety Report 24386790 (Version 4)
Quarter: 2025Q4

REPORT INFORMATION
  Report Type: Spontaneous
  Country: US (occurrence: US)
  Receive Date: 20241002
  Receipt Date: 20251007
  Transmission Date: 20260117
  Serious: Yes (Death, Other)
  Sender: BRISTOL-MYERS SQUIBB COMPANY
  Company Number: US-BRISTOL-MYERS SQUIBB COMPANY-2024-155186

PATIENT
  Age: 91 Year
  Sex: Female

DRUGS (1)
  1. ELIQUIS [Suspect]
     Active Substance: APIXABAN
     Indication: Atrial fibrillation
     Dates: start: 20220716, end: 20240731

REACTIONS (4)
  - Cerebral ischaemia [Fatal]
  - Fall [Unknown]
  - Thalamic stroke [Unknown]
  - Cerebellar stroke [Unknown]

NARRATIVE: CASE EVENT DATE: 20240701
